FAERS Safety Report 15270761 (Version 1)
Quarter: 2018Q3

REPORT INFORMATION
  Report Type: Spontaneous
  Country: US (occurrence: US)
  Receive Date: 20180726
  Receipt Date: 20180726
  Transmission Date: 20181010
  Serious: No
  Sender: FDA-Public Use
  Company Number: None

PATIENT
  Age: 79 Year
  Sex: Female
  Weight: 54.43 kg

DRUGS (1)
  1. FLECAINIDE ACETATE. [Suspect]
     Active Substance: FLECAINIDE ACETATE
     Indication: ARRHYTHMIA
     Dosage: ?          QUANTITY:50 MG MILLIGRAM(S);?
     Route: 048

REACTIONS (2)
  - Wrong technique in product usage process [None]
  - Oral discomfort [None]

NARRATIVE: CASE EVENT DATE: 20180720
